FAERS Safety Report 12921217 (Version 1)
Quarter: 2016Q4

REPORT INFORMATION
  Report Type: Spontaneous
  Country: US (occurrence: US)
  Receive Date: 20161107
  Receipt Date: 20161107
  Transmission Date: 20170207
  Serious: Yes (Other)
  Sender: FDA-Public Use
  Company Number: PHHY2016US151148

PATIENT
  Age: 59 Year
  Sex: Female
  Weight: 82 kg

DRUGS (14)
  1. DAPTOMYCIN. [Suspect]
     Active Substance: DAPTOMYCIN
     Indication: SEPSIS
  2. MICAFUNGIN [Suspect]
     Active Substance: MICAFUNGIN
     Indication: URINARY TRACT INFECTION
     Route: 065
  3. TACROLIMUS. [Concomitant]
     Active Substance: TACROLIMUS
     Indication: IMMUNOSUPPRESSION
     Dosage: 10 NG/ML, FOR 1ST 3 MONTHS
     Route: 065
  4. LINEZOLID. [Suspect]
     Active Substance: LINEZOLID
     Indication: URINARY TRACT INFECTION
     Route: 065
  5. LINEZOLID. [Suspect]
     Active Substance: LINEZOLID
     Indication: SEPSIS
     Route: 065
  6. MEROPENEM. [Suspect]
     Active Substance: MEROPENEM
     Indication: URINARY TRACT INFECTION
     Route: 065
  7. RITUXIMAB [Concomitant]
     Active Substance: RITUXIMAB
     Indication: IMMUNOSUPPRESSION
     Dosage: 150 MG/M2, UNK
     Route: 065
  8. CEFEPIME [Suspect]
     Active Substance: CEFEPIME HYDROCHLORIDE
     Indication: URINARY TRACT INFECTION
     Dosage: FOR 10 DAYS
     Route: 065
  9. ANTITHYMOCYTE IMMUNOGLOBULIN [Concomitant]
     Active Substance: THYMOCYTE IMMUNE GLOBULIN NOS
     Indication: IMMUNOSUPPRESSION
     Dosage: 2 MG/KG, UNK
     Route: 065
  10. TACROLIMUS. [Concomitant]
     Active Substance: TACROLIMUS
     Dosage: 8 NG/ML, THEREAFTER
     Route: 065
  11. DAPTOMYCIN. [Suspect]
     Active Substance: DAPTOMYCIN
     Indication: URINARY TRACT INFECTION
     Route: 065
  12. MICAFUNGIN [Suspect]
     Active Substance: MICAFUNGIN
     Indication: SEPSIS
  13. METHYLPREDNISOLONE. [Concomitant]
     Active Substance: METHYLPREDNISOLONE
     Indication: IMMUNOSUPPRESSION
     Route: 065
  14. MEROPENEM. [Suspect]
     Active Substance: MEROPENEM
     Indication: SEPSIS

REACTIONS (2)
  - Hyperoxaluria [Unknown]
  - Nephropathy [Unknown]
